FAERS Safety Report 25573349 (Version 2)
Quarter: 2025Q3

REPORT INFORMATION
  Report Type: Spontaneous
  Country: US (occurrence: US)
  Receive Date: 20250717
  Receipt Date: 20250815
  Transmission Date: 20251020
  Serious: No
  Sender: PFIZER
  Company Number: US-PFIZER INC-202500143873

PATIENT
  Age: 20 Year
  Sex: Male
  Weight: 70.58 kg

DRUGS (1)
  1. BICILLIN L-A [Suspect]
     Active Substance: PENICILLIN G BENZATHINE
     Indication: Primary syphilis
     Route: 030
     Dates: start: 20250613, end: 20250613

REACTIONS (1)
  - Recalled product administered [Unknown]
